FAERS Safety Report 19984277 (Version 2)
Quarter: 2021Q4

REPORT INFORMATION
  Report Type: Spontaneous
  Country: US (occurrence: US)
  Receive Date: 20211022
  Receipt Date: 20211025
  Transmission Date: 20220303
  Serious: Yes (Life-Threatening, Hospitalization)
  Sender: FDA-Public Use
  Company Number: US-JNJFOC-20211020485

PATIENT
  Age: 30 Year
  Sex: Female
  Weight: 72 kg

DRUGS (2)
  1. ACETAMINOPHEN [Suspect]
     Active Substance: ACETAMINOPHEN
     Indication: Suicide attempt
     Dosage: ACETAMINOPHEN APPROXIMATELY 20000 MG ONCE
     Route: 048
     Dates: start: 20011004, end: 20011004
  2. ADVIL [Suspect]
     Active Substance: IBUPROFEN
     Indication: Product used for unknown indication
     Route: 048

REACTIONS (6)
  - Suicide attempt [Recovered/Resolved]
  - Pulmonary oedema [Recovered/Resolved]
  - Intentional overdose [Recovered/Resolved]
  - Acute hepatic failure [Recovered/Resolved]
  - Acute kidney injury [Not Recovered/Not Resolved]
  - Gastrointestinal haemorrhage [Recovered/Resolved]

NARRATIVE: CASE EVENT DATE: 20011008
